FAERS Safety Report 20322000 (Version 3)
Quarter: 2025Q1

REPORT INFORMATION
  Report Type: Spontaneous
  Country: FR (occurrence: FR)
  Receive Date: 20220111
  Receipt Date: 20250128
  Transmission Date: 20250409
  Serious: Yes (Other)
  Sender: AMGEN
  Company Number: FR-AMGEN-FRASP2022002823

PATIENT

DRUGS (1)
  1. ROMIPLOSTIM [Suspect]
     Active Substance: ROMIPLOSTIM
     Indication: Immune thrombocytopenia
     Dosage: 1 MICROGRAM/KILOGRAM, QWK
     Route: 065

REACTIONS (8)
  - Immune thrombocytopenia [Recovered/Resolved]
  - Haemorrhage [Unknown]
  - Severe acute respiratory syndrome [Unknown]
  - B-cell small lymphocytic lymphoma [Unknown]
  - Scleroderma [Unknown]
  - Therapy non-responder [Unknown]
  - Loss of therapeutic response [Unknown]
  - Coronavirus infection [Unknown]
